FAERS Safety Report 11446681 (Version 1)
Quarter: 2015Q3

REPORT INFORMATION
  Report Type: Spontaneous
  Country: US (occurrence: US)
  Receive Date: 20150831
  Receipt Date: 20150831
  Transmission Date: 20151125
  Serious: No
  Sender: FDA-Public Use
  Company Number: US-ELI_LILLY_AND_COMPANY-US200810003118

PATIENT
  Age: 53 Year
  Sex: Female

DRUGS (6)
  1. VIVELLE-DOT [Concomitant]
     Active Substance: ESTRADIOL
     Indication: OESTROGEN REPLACEMENT THERAPY
     Dosage: 0.025 MG, WEEKLY (1/W)
  2. RELPAX [Concomitant]
     Active Substance: ELETRIPTAN HYDROBROMIDE
     Indication: MIGRAINE
     Dosage: UNK, AS NEEDED
  3. CYMBALTA [Suspect]
     Active Substance: DULOXETINE HYDROCHLORIDE
     Indication: MIGRAINE
     Dosage: 30 MG, UNK
     Dates: start: 20081008, end: 20081009
  4. NEXIUM [Concomitant]
     Active Substance: ESOMEPRAZOLE MAGNESIUM
     Indication: GASTROOESOPHAGEAL REFLUX DISEASE
     Dosage: 40 MG, DAILY (1/D)
  5. TOPROL XL [Concomitant]
     Active Substance: METOPROLOL SUCCINATE
     Indication: MIGRAINE
     Dosage: 25 MG, DAILY (1/D)
  6. BONIVA [Concomitant]
     Active Substance: IBANDRONATE SODIUM
     Indication: OSTEOPOROSIS
     Dosage: 150 MG, MONTHLY (1/M)

REACTIONS (6)
  - Blood pressure increased [Unknown]
  - Palpitations [Unknown]
  - Dizziness [Unknown]
  - Dissociation [Unknown]
  - Tremor [Unknown]
  - Heart rate increased [Unknown]

NARRATIVE: CASE EVENT DATE: 20081008
